FAERS Safety Report 11614246 (Version 1)
Quarter: 2015Q4

REPORT INFORMATION
  Report Type: Spontaneous
  Country: DK (occurrence: DE)
  Receive Date: 20151008
  Receipt Date: 20151008
  Transmission Date: 20160304
  Serious: Yes (Other)
  Sender: FDA-Public Use
  Company Number: DE-FRI-1000080062

PATIENT
  Age: 36 Year
  Sex: Female
  Weight: 75 kg

DRUGS (2)
  1. ESCITALOPRAM [Suspect]
     Active Substance: ESCITALOPRAM OXALATE
     Indication: BORDERLINE PERSONALITY DISORDER
     Dosage: 20 MILLIGRAM (TEMPORARILY DISCONTINUED FOR 4 DAYS IN GESTATIONAL WEEK 4)
     Route: 048
     Dates: start: 2013
  2. FOLSAEURE [Concomitant]
     Active Substance: FOLIC ACID
     Indication: PROPHYLAXIS OF NEURAL TUBE DEFECT
     Route: 048
     Dates: start: 20140723, end: 20140729

REACTIONS (6)
  - Condition aggravated [Unknown]
  - Oligohydramnios [Recovered/Resolved]
  - Foetal death [Recovered/Resolved]
  - Retroplacental haematoma [Unknown]
  - Pregnancy [Recovered/Resolved]
  - Uterine leiomyoma [Unknown]
